FAERS Safety Report 25990222 (Version 3)
Quarter: 2025Q4

REPORT INFORMATION
  Report Type: Spontaneous
  Country: US (occurrence: US)
  Receive Date: 20251103
  Receipt Date: 20251128
  Transmission Date: 20260117
  Serious: Yes (Other)
  Sender: UPSHER SMITH LABORATORIES
  Company Number: US-UPSHER-SMITH LABORATORIES, LLC-20251001378

PATIENT
  Sex: Male

DRUGS (1)
  1. VIGADRONE [Suspect]
     Active Substance: VIGABATRIN
     Indication: Infantile spasms
     Dosage: 850 MG, BID (17 ML)
     Route: 048
     Dates: start: 20251024

REACTIONS (6)
  - Hypopnoea [Not Recovered/Not Resolved]
  - Abdominal distension [Not Recovered/Not Resolved]
  - Gastrointestinal disorder [Not Recovered/Not Resolved]
  - Tachypnoea [Not Recovered/Not Resolved]
  - Somnolence [Not Recovered/Not Resolved]
  - Diarrhoea [Not Recovered/Not Resolved]

NARRATIVE: CASE EVENT DATE: 20250101
